FAERS Safety Report 5789623-5 (Version None)
Quarter: 2008Q2

REPORT INFORMATION
  Report Type: 
  Country: None (occurrence: None)
  Receive Date: 20080626
  Receipt Date: 20080228
  Transmission Date: 20081010
  Serious: No
  Sender: FDA-Public Use
  Company Number: A0708612A

PATIENT
  Age: 67 Year
  Sex: Female

DRUGS (8)
  1. ALLI [Suspect]
  2. PRILOSEC [Concomitant]
  3. BENICAR HCT [Concomitant]
  4. SYNTHROID [Concomitant]
  5. LEXAPRO [Concomitant]
  6. CRESTOR [Concomitant]
  7. UNSPECIFIED MEDICATION [Concomitant]
  8. CALCIUM + D [Concomitant]

REACTIONS (2)
  - PHARMACEUTICAL PRODUCT COMPLAINT [None]
  - WEIGHT INCREASED [None]
